FAERS Safety Report 12735514 (Version 1)
Quarter: 2016Q3

REPORT INFORMATION
  Report Type: Report from Study
  Country: CH (occurrence: CH)
  Receive Date: 20160912
  Receipt Date: 20160912
  Transmission Date: 20161109
  Serious: Yes (Other)
  Sender: FDA-Public Use
  Company Number: CH-EMD SERONO-7269494

PATIENT
  Age: 32 Year
  Sex: Male

DRUGS (1)
  1. REBIF [Suspect]
     Active Substance: INTERFERON BETA-1A
     Indication: MULTIPLE SCLEROSIS
     Route: 058
     Dates: start: 20131216

REACTIONS (7)
  - Pericardial effusion [Unknown]
  - Chest pain [Recovering/Resolving]
  - Injection site induration [Not Recovered/Not Resolved]
  - Influenza like illness [Unknown]
  - Viral infection [Unknown]
  - Injection site erythema [Not Recovered/Not Resolved]
  - Thyroid hormones increased [Not Recovered/Not Resolved]
